FAERS Safety Report 23807956 (Version 3)
Quarter: 2025Q3

REPORT INFORMATION
  Report Type: Spontaneous
  Country: CN (occurrence: CN)
  Receive Date: 20240502
  Receipt Date: 20250723
  Transmission Date: 20251021
  Serious: Yes (Other)
  Sender: PFIZER
  Company Number: CN-MLMSERVICE-20240423-PI036234-00150-1

PATIENT
  Age: 19 Year
  Sex: Male

DRUGS (18)
  1. FLUCONAZOLE [Interacting]
     Active Substance: FLUCONAZOLE
     Indication: Antifungal treatment
  2. VINCRISTINE [Interacting]
     Active Substance: VINCRISTINE
     Indication: Alveolar rhabdomyosarcoma
  3. ARIPIPRAZOLE [Interacting]
     Active Substance: ARIPIPRAZOLE
  4. ACTINOMYCIN D [Concomitant]
     Active Substance: DACTINOMYCIN
     Indication: Alveolar rhabdomyosarcoma
  5. ACTINOMYCIN D [Concomitant]
     Active Substance: DACTINOMYCIN
  6. ACTINOMYCIN D [Concomitant]
     Active Substance: DACTINOMYCIN
  7. ACTINOMYCIN D [Concomitant]
     Active Substance: DACTINOMYCIN
  8. CYCLOPHOSPHAMIDE [Concomitant]
     Active Substance: CYCLOPHOSPHAMIDE
     Indication: Alveolar rhabdomyosarcoma
  9. CARBOPLATIN [Concomitant]
     Active Substance: CARBOPLATIN
     Indication: Alveolar rhabdomyosarcoma
  10. CARBOPLATIN [Concomitant]
     Active Substance: CARBOPLATIN
  11. BEVACIZUMAB [Concomitant]
     Active Substance: BEVACIZUMAB
     Indication: Alveolar rhabdomyosarcoma
  12. BEVACIZUMAB [Concomitant]
     Active Substance: BEVACIZUMAB
  13. BEVACIZUMAB [Concomitant]
     Active Substance: BEVACIZUMAB
  14. BEVACIZUMAB [Concomitant]
     Active Substance: BEVACIZUMAB
  15. ETOPOSIDE [Concomitant]
     Active Substance: ETOPOSIDE
     Indication: Alveolar rhabdomyosarcoma
  16. IRINOTECAN [Concomitant]
     Active Substance: IRINOTECAN
     Indication: Alveolar rhabdomyosarcoma
  17. ADRIAMYCIN [Concomitant]
     Active Substance: DOXORUBICIN HYDROCHLORIDE
     Indication: Alveolar rhabdomyosarcoma
  18. IFOSFAMIDE [Concomitant]
     Active Substance: IFOSFAMIDE
     Indication: Alveolar rhabdomyosarcoma

REACTIONS (2)
  - Drug interaction [Recovering/Resolving]
  - Neuropathy peripheral [Recovering/Resolving]
